FAERS Safety Report 23126285 (Version 1)
Quarter: 2023Q4

REPORT INFORMATION
  Report Type: Spontaneous
  Country: US (occurrence: None)
  Receive Date: 20231030
  Receipt Date: 20231030
  Transmission Date: 20240110
  Serious: Yes (Life-Threatening)
  Sender: FDA-Public Use
  Company Number: None

PATIENT
  Age: 30 Year
  Sex: Male

DRUGS (1)
  1. MIDAZOLAM [Suspect]
     Active Substance: MIDAZOLAM

REACTIONS (3)
  - Muscular dystrophy [None]
  - Carbon dioxide increased [None]
  - Condition aggravated [None]

NARRATIVE: CASE EVENT DATE: 20230826
